FAERS Safety Report 4346024-4 (Version None)
Quarter: 2004Q1

REPORT INFORMATION
  Report Type: 
  Country: None (occurrence: None)
  Receive Date: 20040325
  Receipt Date: 20031208
  Transmission Date: 20041129
  Serious: No
  Sender: FDA-Public Use
  Company Number: USA030845695

PATIENT
  Sex: Female

DRUGS (13)
  1. FORTEO [Suspect]
     Indication: OSTEOPOROSIS
     Dosage: 20 UG/1 DAY
  2. BEXTRA [Concomitant]
  3. DETROL [Concomitant]
  4. SYNTHROID [Concomitant]
  5. VASOTEC [Concomitant]
  6. COUMADIN [Concomitant]
  7. XANAX [Concomitant]
  8. ZOLOFT [Concomitant]
  9. REGLAN [Concomitant]
  10. NEXIUM [Concomitant]
  11. DURAGESIC [Concomitant]
  12. OSCAL (CALCIUM CARBONATE) [Concomitant]
  13. VICODIN [Concomitant]

REACTIONS (1)
  - CONFUSIONAL STATE [None]
